FAERS Safety Report 12801036 (Version 1)
Quarter: 2016Q4

REPORT INFORMATION
  Report Type: Report from Study
  Country: US (occurrence: US)
  Receive Date: 20161003
  Receipt Date: 20161003
  Transmission Date: 20170207
  Serious: Yes (Hospitalization, Other)
  Sender: FDA-Public Use
  Company Number: US-ROCHE-1674803

PATIENT
  Age: 73 Year
  Sex: Female
  Weight: 82 kg

DRUGS (7)
  1. VELIPARIB [Suspect]
     Active Substance: VELIPARIB
     Indication: MALIGNANT PERITONEAL NEOPLASM
     Dosage: LAST DOSE ADMINISTERED 14/SEP/2015. TWICE A DAY ON DAY ONE AND DAY 21.
     Route: 048
     Dates: start: 20150908, end: 20150914
  2. BEVACIZUMAB [Suspect]
     Active Substance: BEVACIZUMAB
     Route: 042
     Dates: start: 20151103
  3. CARBOPLATIN. [Suspect]
     Active Substance: CARBOPLATIN
     Indication: MALIGNANT PERITONEAL NEOPLASM
     Dosage: LAST DOSE ADMINISTERED ON 20/AUG/2015.
     Route: 042
  4. BEVACIZUMAB [Suspect]
     Active Substance: BEVACIZUMAB
     Indication: MALIGNANT PERITONEAL NEOPLASM
     Dosage: LAST DOSE ADMINISTERED ON 20/AUG/2015.
     Route: 042
     Dates: start: 20150604
  5. VELIPARIB [Suspect]
     Active Substance: VELIPARIB
     Route: 048
     Dates: start: 20150514
  6. VELIPARIB [Suspect]
     Active Substance: VELIPARIB
     Dosage: LAST DOSE ADMINISTERED 24/AUG/2015. TWICE A DAY ON DAY ONE AND DAY 21.
     Route: 048
     Dates: start: 20150818, end: 20150824
  7. PACLITAXEL. [Suspect]
     Active Substance: PACLITAXEL
     Indication: MALIGNANT PERITONEAL NEOPLASM
     Dosage: LAST DOSE ADMINISTERED ON 20/AUG/2015.
     Route: 042

REACTIONS (8)
  - Fall [Unknown]
  - White blood cell count decreased [Unknown]
  - Platelet count decreased [Unknown]
  - Diarrhoea [Recovered/Resolved]
  - Muscular weakness [Recovered/Resolved]
  - Fatigue [Recovered/Resolved]
  - Dehydration [Recovered/Resolved]
  - Neutrophil count decreased [Unknown]

NARRATIVE: CASE EVENT DATE: 20150828
